FAERS Safety Report 9350419 (Version 3)
Quarter: 2013Q3

REPORT INFORMATION
  Report Type: Spontaneous
  Country: DE (occurrence: DE)
  Receive Date: 20130617
  Receipt Date: 20130726
  Transmission Date: 20140515
  Serious: Yes (Hospitalization)
  Sender: FDA-Public Use
  Company Number: DE-AMGEN-DEUSP2013041888

PATIENT
  Age: 77 Year
  Sex: Female
  Weight: 91 kg

DRUGS (5)
  1. PEGFILGRASTIM [Suspect]
     Indication: PRODUCT USED FOR UNKNOWN INDICATION
     Dosage: 6 MG, 1/DAY
     Route: 058
     Dates: start: 20130427, end: 20130427
  2. TOPOTECAN [Suspect]
     Dosage: 1.93 MG, DAILY
     Route: 042
     Dates: start: 20130603, end: 20130607
  3. SORAFENIB [Suspect]
     Dosage: 400 MG, DAILY
     Route: 048
     Dates: start: 20130608, end: 20130610
  4. DARBEPOETIN ALFA [Concomitant]
     Indication: PRODUCT USED FOR UNKNOWN INDICATION
     Dosage: UNK
     Route: 065
  5. FILGRASTIM [Concomitant]
     Indication: PRODUCT USED FOR UNKNOWN INDICATION
     Dosage: UNK
     Route: 065

REACTIONS (1)
  - Embolism [Recovered/Resolved]
